FAERS Safety Report 11799530 (Version 1)
Quarter: 2015Q4

REPORT INFORMATION
  Report Type: Spontaneous
  Country: HU (occurrence: HU)
  Receive Date: 20151203
  Receipt Date: 20151203
  Transmission Date: 20160305
  Serious: Yes (Hospitalization)
  Sender: FDA-Public Use
  Company Number: PHHY2015HU143218

PATIENT
  Age: 60 Year
  Sex: Female

DRUGS (3)
  1. AFINITOR [Suspect]
     Active Substance: EVEROLIMUS
     Indication: BREAST CANCER METASTATIC
     Dosage: 10 MG, QD
     Route: 065
     Dates: start: 201509, end: 20151126
  2. MEDROL [Concomitant]
     Active Substance: METHYLPREDNISOLONE
     Indication: PRODUCT USED FOR UNKNOWN INDICATION
     Route: 065
  3. FORTEDOL//DICLOFENAC POTASSIUM [Concomitant]
     Indication: PAIN
     Route: 065

REACTIONS (13)
  - Oedema peripheral [Not Recovered/Not Resolved]
  - Local swelling [Recovering/Resolving]
  - Sleep disorder [Not Recovered/Not Resolved]
  - Mouth swelling [Not Recovered/Not Resolved]
  - Peripheral swelling [Recovering/Resolving]
  - Aphthous ulcer [Recovered/Resolved]
  - Blood glucose increased [Not Recovered/Not Resolved]
  - Heart rate increased [Not Recovered/Not Resolved]
  - Arthralgia [Not Recovered/Not Resolved]
  - Pollakiuria [Not Recovered/Not Resolved]
  - Dyspnoea [Not Recovered/Not Resolved]
  - Pyrexia [Not Recovered/Not Resolved]
  - Swelling face [Recovering/Resolving]

NARRATIVE: CASE EVENT DATE: 201509
